FAERS Safety Report 5674576-0 (Version None)
Quarter: 2008Q1

REPORT INFORMATION
  Report Type: 
  Country: None (occurrence: None)
  Receive Date: 20080320
  Receipt Date: 20080318
  Transmission Date: 20080703
  Serious: Yes (Hospitalization, Other)
  Sender: FDA-Public Use
  Company Number: DE-JNJFOC-20080304055

PATIENT
  Age: 27 Year
  Sex: Male

DRUGS (2)
  1. INVEGA [Suspect]
     Indication: SCHIZOPHRENIA
     Route: 048
  2. AMISULPRID [Concomitant]
     Route: 065

REACTIONS (1)
  - MYOPERICARDITIS [None]
